FAERS Safety Report 14002624 (Version 1)
Quarter: 2017Q3

REPORT INFORMATION
  Report Type: Spontaneous
  Country: AU (occurrence: AU)
  Receive Date: 20170922
  Receipt Date: 20170922
  Transmission Date: 20171128
  Serious: Yes (Other)
  Sender: FDA-Public Use
  Company Number: AU-SUN PHARMACEUTICAL INDUSTRIES LTD-2017RR-150386

PATIENT
  Age: 55 Year
  Sex: Female

DRUGS (2)
  1. RISPERIDONE. [Suspect]
     Active Substance: RISPERIDONE
     Indication: DEPRESSION
     Route: 065
  2. RISPERIDONE. [Suspect]
     Active Substance: RISPERIDONE
     Indication: SCHIZOAFFECTIVE DISORDER

REACTIONS (3)
  - Mastitis [Recovered/Resolved]
  - Hyperprolactinaemia [Recovered/Resolved]
  - Granuloma [Recovered/Resolved]
